FAERS Safety Report 6258652-X (Version None)
Quarter: 2009Q3

REPORT INFORMATION
  Report Type: 
  Country: None (occurrence: None)
  Receive Date: 20090702
  Receipt Date: 20090626
  Transmission Date: 20100115
  Serious: Yes (Hospitalization, Other)
  Sender: FDA-Public Use
  Company Number: 2008US003508

PATIENT
  Age: 66 Year
  Sex: Male
  Weight: 104.3 kg

DRUGS (7)
  1. PROTOPIC [Suspect]
     Indication: DERMATITIS
     Dosage: 0.1%, TOPICAL; BID TOPICAL
     Route: 061
     Dates: start: 20040415, end: 20051110
  2. PROTOPIC [Suspect]
     Indication: DERMATITIS
     Dosage: 0.1%, TOPICAL; BID TOPICAL
     Route: 061
     Dates: start: 20031210
  3. ELIDEL [Suspect]
     Indication: DERMATITIS
     Dosage: 0.1%, BID, TOPICAL
     Route: 061
     Dates: start: 20040415, end: 20051011
  4. ELIDEL [Suspect]
     Indication: DERMATITIS
     Dosage: 0.1%, BID, TOPICAL
     Route: 061
     Dates: start: 20051021
  5. LITHIUM CARBONATE [Concomitant]
  6. HYDROCODONE (HYDROCODONE) [Concomitant]
  7. THYROID  THERAPY [Concomitant]

REACTIONS (6)
  - BONE MARROW FAILURE [None]
  - EXTRANODAL MARGINAL ZONE B-CELL LYMPHOMA (MALT TYPE) [None]
  - FEBRILE NEUTROPENIA [None]
  - GASTROENTERITIS [None]
  - NON-HODGKIN'S LYMPHOMA [None]
  - OEDEMA PERIPHERAL [None]
